FAERS Safety Report 13274453 (Version 1)
Quarter: 2017Q1

REPORT INFORMATION
  Report Type: Report from Study
  Country: US (occurrence: US)
  Receive Date: 20170227
  Receipt Date: 20170227
  Transmission Date: 20170428
  Serious: Yes (Other)
  Sender: FDA-Public Use
  Company Number: US-MYLANLABS-2017M1011051

PATIENT

DRUGS (10)
  1. CAPECITABINE. [Suspect]
     Active Substance: CAPECITABINE
     Dosage: DOSE LEVEL -1B DAYS 1-14
     Route: 048
  2. BEVACIZUMAB [Suspect]
     Active Substance: BEVACIZUMAB
     Indication: NEOPLASM
     Dosage: 7.5MG/KG ON DAY 1 OF EACH CYCLE
     Route: 042
  3. CAPECITABINE. [Suspect]
     Active Substance: CAPECITABINE
     Indication: NEOPLASM
     Dosage: DOSE LEVEL 1 DAYS 1-14
     Route: 048
  4. CAPECITABINE. [Suspect]
     Active Substance: CAPECITABINE
     Dosage: DOSE LEVEL -1 DAYS 1-14
     Route: 048
  5. OXALIPLATIN. [Suspect]
     Active Substance: OXALIPLATIN
     Dosage: 100 MG/M2 AT DOSE LEVEL -1B
     Route: 042
  6. EVEROLIMUS [Suspect]
     Active Substance: EVEROLIMUS
     Dosage: DOSE LEVEL -1 DAYS 1-21
     Route: 048
  7. OXALIPLATIN. [Suspect]
     Active Substance: OXALIPLATIN
     Dosage: 100 MG/M2 AT DOSE LEVEL -1
     Route: 042
  8. EVEROLIMUS [Suspect]
     Active Substance: EVEROLIMUS
     Dosage: DOSE LEVEL -1B DAYS 1-21
     Route: 048
  9. OXALIPLATIN. [Suspect]
     Active Substance: OXALIPLATIN
     Indication: NEOPLASM
     Dosage: 130MG/M2 AT DOSE LEVEL 1
     Route: 042
  10. EVEROLIMUS [Suspect]
     Active Substance: EVEROLIMUS
     Indication: NEOPLASM
     Dosage: DOSE LEVEL 1 DAYS 1-21
     Route: 048

REACTIONS (1)
  - Female genital tract fistula [Unknown]
